FAERS Safety Report 25763927 (Version 1)
Quarter: 2025Q3

REPORT INFORMATION
  Report Type: Spontaneous
  Country: US (occurrence: US)
  Receive Date: 20250905
  Receipt Date: 20250905
  Transmission Date: 20251020
  Serious: No
  Sender: DOMPE FARMACEUTICI
  Company Number: US-FARMAPROD-202411-3881

PATIENT
  Age: 65 Year
  Sex: Female

DRUGS (16)
  1. OXERVATE [Suspect]
     Active Substance: CENEGERMIN-BKBJ
     Indication: Neurotrophic keratopathy
     Route: 047
     Dates: start: 20241106
  2. OXERVATE [Suspect]
     Active Substance: CENEGERMIN-BKBJ
  3. OXERVATE [Suspect]
     Active Substance: CENEGERMIN-BKBJ
  4. OXERVATE [Suspect]
     Active Substance: CENEGERMIN-BKBJ
  5. OFLOXACIN [Concomitant]
     Active Substance: OFLOXACIN
  6. ARTIFICIAL TEARS [Concomitant]
  7. WEGOVY [Concomitant]
     Active Substance: SEMAGLUTIDE
  8. ABILIFY [Concomitant]
     Active Substance: ARIPIPRAZOLE
  9. GEMTESA [Concomitant]
     Active Substance: VIBEGRON
  10. COZAAR [Concomitant]
     Active Substance: LOSARTAN POTASSIUM
  11. CELEXA [Concomitant]
     Active Substance: CITALOPRAM HYDROBROMIDE
  12. MELOXICAM [Concomitant]
     Active Substance: MELOXICAM
  13. GABAPENTIN [Concomitant]
     Active Substance: GABAPENTIN
  14. VITAMIN D3 [Concomitant]
     Active Substance: CHOLECALCIFEROL
  15. SYNTHROID [Concomitant]
     Active Substance: LEVOTHYROXINE SODIUM
  16. AUTOLOGOUS HUMAN CORNEAL EPITHELIAL CELLS [Concomitant]
     Active Substance: AUTOLOGOUS HUMAN CORNEAL EPITHELIAL CELLS

REACTIONS (10)
  - Eye irritation [Recovering/Resolving]
  - Rhinorrhoea [Unknown]
  - Product use complaint [Unknown]
  - Headache [Recovering/Resolving]
  - Eye pain [Not Recovered/Not Resolved]
  - Eyelid pain [Unknown]
  - Photophobia [Unknown]
  - Pyrexia [Unknown]
  - Sinusitis [Unknown]
  - Eye discharge [Unknown]

NARRATIVE: CASE EVENT DATE: 20241205
